FAERS Safety Report 16488710 (Version 1)
Quarter: 2019Q2

REPORT INFORMATION
  Report Type: Spontaneous
  Country: CO (occurrence: CO)
  Receive Date: 20190627
  Receipt Date: 20190627
  Transmission Date: 20190711
  Serious: Yes (Other)
  Sender: FDA-Public Use
  Company Number: CO-BIOMARINAP-CO-2019-124454

PATIENT
  Age: 11 Year
  Sex: Female

DRUGS (1)
  1. VIMIZIM [Suspect]
     Active Substance: ELOSULFASE ALFA
     Indication: MUCOPOLYSACCHARIDOSIS IV
     Dosage: 50 MILLIGRAM
     Route: 065
     Dates: start: 20160822

REACTIONS (3)
  - Pyrexia [Unknown]
  - Fall [Unknown]
  - Gait disturbance [Unknown]

NARRATIVE: CASE EVENT DATE: 20190625
